FAERS Safety Report 20090679 (Version 1)
Quarter: 2021Q4

REPORT INFORMATION
  Report Type: Spontaneous
  Country: US (occurrence: US)
  Receive Date: 20211119
  Receipt Date: 20211119
  Transmission Date: 20220303
  Serious: No
  Sender: FDA-Public Use
  Company Number: US-BAYER-2021A252637

PATIENT
  Age: 74 Year
  Sex: Female

DRUGS (1)
  1. MIRALAX [Suspect]
     Active Substance: POLYETHYLENE GLYCOL 3350
     Indication: Gastrointestinal disorder
     Dosage: 0.5 DF, OM (WITH COFFEE)
     Route: 048

REACTIONS (5)
  - Headache [Recovered/Resolved]
  - Nausea [Recovered/Resolved]
  - Abdominal pain [Unknown]
  - Incorrect dose administered [None]
  - Product contamination physical [None]

NARRATIVE: CASE EVENT DATE: 20211117
